FAERS Safety Report 8461736-9 (Version None)
Quarter: 2012Q2

REPORT INFORMATION
  Report Type: 
  Country: None (occurrence: None)
  Receive Date: 20120625
  Receipt Date: 20120615
  Transmission Date: 20120825
  Serious: Yes (Hospitalization)
  Sender: FDA-Public Use
  Company Number: US-JNJFOC-20110303570

PATIENT
  Sex: Female

DRUGS (16)
  1. METFORMIN HYDROCHLORIDE [Suspect]
     Route: 048
     Dates: start: 20101016, end: 20101115
  2. PLACEBO [Suspect]
     Indication: TYPE 2 DIABETES MELLITUS
     Route: 048
     Dates: start: 20100811
  3. ASPIRIN [Concomitant]
     Route: 065
  4. FENTANYL-100 [Suspect]
     Indication: PRODUCT USED FOR UNKNOWN INDICATION
     Route: 065
  5. SAXAGLIPTIN [Suspect]
     Indication: TYPE 2 DIABETES MELLITUS
     Route: 048
     Dates: start: 20100811
  6. METFORMIN HYDROCHLORIDE [Suspect]
     Indication: TYPE 2 DIABETES MELLITUS
     Route: 048
     Dates: end: 20101007
  7. ALDOSTERONE ANTAGONISTS [Concomitant]
     Route: 065
  8. METFORMIN HYDROCHLORIDE [Suspect]
     Route: 048
     Dates: start: 20101008, end: 20101015
  9. STATINS [Concomitant]
     Route: 065
  10. CALCIUM CHANNEL BLOCKER [Concomitant]
     Route: 065
  11. ACE INHIBITOR [Concomitant]
     Route: 065
  12. BETA BLOCKER AGENT [Concomitant]
     Route: 065
  13. DIURETICS [Concomitant]
     Route: 065
  14. SITAGLIPTIN PHOSPHATE [Suspect]
     Indication: PRODUCT USED FOR UNKNOWN INDICATION
     Route: 065
     Dates: start: 20101116, end: 20110209
  15. RENIN-ANGIOTENSIN SYSTEM, AGENTS ACTING ON [Concomitant]
     Route: 065
  16. NITRATES [Concomitant]
     Route: 065

REACTIONS (7)
  - BLOOD GLUCOSE INCREASED [None]
  - ANXIETY [None]
  - HAEMOGLOBIN DECREASED [None]
  - ATRIAL FIBRILLATION [None]
  - PSYCHOTIC DISORDER [None]
  - VOMITING [None]
  - PSYCHOSOMATIC DISEASE [None]
